FAERS Safety Report 5091242-3 (Version None)
Quarter: 2006Q3

REPORT INFORMATION
  Report Type: 
  Country: None (occurrence: None)
  Receive Date: 20060727
  Receipt Date: 20060506
  Transmission Date: 20061208
  Serious: Yes (Other)
  Sender: FDA-Public Use
  Company Number: 2006061332

PATIENT
  Age: 74 Year
  Sex: Male
  Weight: 99.7913 kg

DRUGS (7)
  1. LYRICA [Suspect]
     Indication: NEURALGIA
     Dosage: 150 MG (50 MG,3 IN 1 D)
     Dates: start: 20060101
  2. NADOLOL [Concomitant]
  3. LISINOPRIL W/HYDROCHLOROTHIAZIDE (HYDROCHLOROTHIAZIDE, LISINOPRIL) [Concomitant]
  4. RANITIDINE [Concomitant]
  5. LOVASTATIN [Concomitant]
  6. ALLOPURINOL [Concomitant]
  7. DRUG, UNSPECIFIED (DRUG, UNSPECIFIED) [Concomitant]

REACTIONS (3)
  - DRUG INEFFECTIVE [None]
  - SLEEP DISORDER [None]
  - SOMNOLENCE [None]
